FAERS Safety Report 13247563 (Version 3)
Quarter: 2017Q2

REPORT INFORMATION
  Report Type: Report from Study
  Country: AT (occurrence: AT)
  Receive Date: 20170217
  Receipt Date: 20170410
  Transmission Date: 20170830
  Serious: Yes (Hospitalization)
  Sender: FDA-Public Use
  Company Number: AT-ROCHE-1894043

PATIENT
  Age: 72 Year
  Sex: Male
  Weight: 92.1 kg

DRUGS (16)
  1. SEROQUEL [Suspect]
     Active Substance: QUETIAPINE FUMARATE
     Indication: DEPRESSED MOOD
     Route: 065
     Dates: start: 20141124
  2. ZYRTEC [Concomitant]
     Active Substance: CETIRIZINE HYDROCHLORIDE
     Indication: PROPHYLAXIS
     Route: 065
     Dates: start: 20130313
  3. MOXIFLOXACIN. [Concomitant]
     Active Substance: MOXIFLOXACIN
     Indication: BRONCHITIS
     Route: 065
     Dates: start: 20140704, end: 20140708
  4. THROMBO ASS [Concomitant]
     Active Substance: ASPIRIN
     Route: 065
     Dates: start: 20140604, end: 20140827
  5. AMOXICILLIN. [Concomitant]
     Active Substance: AMOXICILLIN
     Indication: PNEUMONIA
     Route: 065
     Dates: start: 20160121, end: 20160130
  6. PARKEMED [Concomitant]
     Active Substance: MEFENAMIC ACID
     Indication: PROPHYLAXIS
     Route: 065
     Dates: start: 20120925
  7. ZOFRAN [Concomitant]
     Active Substance: ONDANSETRON HYDROCHLORIDE
     Indication: PROPHYLAXIS OF NAUSEA AND VOMITING
     Route: 065
     Dates: start: 20120926, end: 20121024
  8. RITUXIMAB [Suspect]
     Active Substance: RITUXIMAB
     Indication: B-CELL LYMPHOMA
     Dosage: MOST RECENT DOSE ON 22/DEC/2016
     Route: 058
     Dates: start: 20161222
  9. GLADEM [Concomitant]
     Active Substance: SERTRALINE HYDROCHLORIDE
     Indication: DEPRESSED MOOD
     Route: 065
     Dates: start: 201208
  10. MIRTEL [Concomitant]
     Active Substance: MIRTAZAPINE
     Indication: DEPRESSED MOOD
     Route: 065
     Dates: start: 20140604, end: 20141123
  11. ZOFRAN [Concomitant]
     Active Substance: ONDANSETRON HYDROCHLORIDE
     Route: 065
     Dates: start: 20121219, end: 20130214
  12. CLAVAMOX [Concomitant]
     Active Substance: AMOXICILLIN\CLAVULANATE POTASSIUM
     Indication: NASOPHARYNGITIS
     Route: 065
     Dates: start: 20131227, end: 20131231
  13. NAVOBAN [Concomitant]
     Active Substance: TROPISETRON HYDROCHLORIDE
     Indication: PROPHYLAXIS OF NAUSEA AND VOMITING
     Route: 065
     Dates: start: 20121121, end: 20121121
  14. RITUXIMAB [Suspect]
     Active Substance: RITUXIMAB
     Indication: B-CELL LYMPHOMA
     Dosage: INDUCTION THERAPY?AS PER PROTOCOL
     Route: 042
  15. PANTOLOC [Concomitant]
     Active Substance: PANTOPRAZOLE SODIUM
     Route: 065
     Dates: start: 20140604, end: 20151105
  16. FENISTIL (AUSTRIA) [Concomitant]
     Indication: PROPHYLAXIS
     Route: 065
     Dates: start: 20120925, end: 20130213

REACTIONS (1)
  - Neutrophil count decreased [Recovered/Resolved]

NARRATIVE: CASE EVENT DATE: 20170209
